FAERS Safety Report 4428040-7 (Version None)
Quarter: 2004Q3

REPORT INFORMATION
  Report Type: 
  Country: None (occurrence: None)
  Receive Date: 20040817
  Receipt Date: 20040720
  Transmission Date: 20050211
  Serious: Yes (Death, Other)
  Sender: FDA-Public Use
  Company Number: DE-MERCK-0407DEU00163

PATIENT
  Age: 14 Year
  Sex: Female

DRUGS (3)
  1. MAGNESIUM (UNSPECIFIED) [Concomitant]
     Route: 065
  2. POTASSIUM (UNSPECIFIED) [Concomitant]
     Indication: HYPOKALAEMIA
     Route: 065
  3. VIOXX [Suspect]
     Indication: HYPOKALAEMIA
     Route: 048
     Dates: start: 20030104, end: 20040601

REACTIONS (7)
  - ASPIRATION [None]
  - DEATH [None]
  - ELECTROCARDIOGRAM QT PROLONGED [None]
  - INFECTION [None]
  - LOSS OF CONSCIOUSNESS [None]
  - PRESCRIBED OVERDOSE [None]
  - TONGUE DISCOLOURATION [None]
